FAERS Safety Report 16689007 (Version 2)
Quarter: 2019Q4

REPORT INFORMATION
  Report Type: Report from Study
  Country: FR (occurrence: FR)
  Receive Date: 20190809
  Receipt Date: 20191003
  Transmission Date: 20200122
  Serious: Yes (Death, Other)
  Sender: FDA-Public Use
  Company Number: FR-GILEAD-2019-0420939

PATIENT
  Age: 25 Year
  Sex: Female
  Weight: 55 kg

DRUGS (25)
  1. LYRICA [Concomitant]
     Active Substance: PREGABALIN
     Indication: PAIN
  2. PARACETAMOL [Concomitant]
     Active Substance: ACETAMINOPHEN
  3. AZACTAM [Concomitant]
     Active Substance: AZTREONAM
  4. VANCOMYCIN [Concomitant]
     Active Substance: VANCOMYCIN
  5. TIENAM [Concomitant]
     Active Substance: CILASTATIN SODIUM\IMIPENEM
  6. ACCOFIL [Concomitant]
     Active Substance: FILGRASTIM
  7. FLUDARABINE [Suspect]
     Active Substance: FLUDARABINE PHOSPHATE
     Indication: BONE MARROW CONDITIONING REGIMEN
     Dosage: 30 MG/M2 (3 DOSES)
     Route: 065
     Dates: start: 20190308, end: 20190310
  8. ZELITREX [Concomitant]
     Active Substance: VALACYCLOVIR HYDROCHLORIDE
     Indication: ANTIVIRAL PROPHYLAXIS
  9. LEDERFOLINE [Concomitant]
     Active Substance: LEUCOVORIN CALCIUM
     Indication: PROPHYLAXIS
  10. SKENAN [Concomitant]
     Active Substance: MORPHINE SULFATE
  11. AXICABTAGENE CILOLEUCEL [Suspect]
     Active Substance: AXICABTAGENE CILOLEUCEL
     Indication: DIFFUSE LARGE B-CELL LYMPHOMA
     Dosage: 68 ML
     Route: 065
     Dates: start: 20190313, end: 20190313
  12. CYCLOPHOSPHAMIDE. [Suspect]
     Active Substance: CYCLOPHOSPHAMIDE
     Indication: BONE MARROW CONDITIONING REGIMEN
     Dosage: 500 MG/M2 (3 DOSES)
     Route: 065
     Dates: start: 20190308, end: 20190310
  13. LUTERAN [Concomitant]
     Active Substance: CHLORMADINONE ACETATE
     Indication: CONTRACEPTION
  14. DECAPEPTYL [GONADORELIN] [Concomitant]
     Active Substance: GONADORELIN
     Indication: CONTRACEPTION
  15. AMIKLIN [AMIKACIN SULFATE] [Concomitant]
  16. KEPPRA [Concomitant]
     Active Substance: LEVETIRACETAM
  17. LOVENOX [Concomitant]
     Active Substance: ENOXAPARIN SODIUM
     Indication: PROPHYLAXIS
  18. BACTRIM [Concomitant]
     Active Substance: SULFAMETHOXAZOLE\TRIMETHOPRIM
     Indication: ANTIBIOTIC PROPHYLAXIS
  19. ACTISKENAN [Concomitant]
     Active Substance: MORPHINE SULFATE
  20. BINOCRIT [Concomitant]
     Active Substance: ERYTHROPOIETIN
     Indication: ANAEMIA
  21. LUTENYL [Concomitant]
     Active Substance: NOMEGESTROL ACETATE
  22. POLARAMINE [Concomitant]
     Active Substance: DEXCHLORPHENIRAMINE MALEATE
  23. PROVAMES [Concomitant]
     Active Substance: ESTRADIOL
     Indication: CONTRACEPTION
  24. ZOFRAN [Concomitant]
     Active Substance: ONDANSETRON HYDROCHLORIDE
  25. OXYCONTIN [Concomitant]
     Active Substance: OXYCODONE HYDROCHLORIDE

REACTIONS (3)
  - Neutropenia [Unknown]
  - Lymphopenia [Not Recovered/Not Resolved]
  - Disease progression [Fatal]

NARRATIVE: CASE EVENT DATE: 20190502
